FAERS Safety Report 21286904 (Version 1)
Quarter: 2022Q3

REPORT INFORMATION
  Report Type: Spontaneous
  Country: US (occurrence: None)
  Receive Date: 20220902
  Receipt Date: 20220902
  Transmission Date: 20221026
  Serious: Yes (Hospitalization)
  Sender: FDA-Public Use
  Company Number: None

PATIENT
  Age: 23 Year
  Sex: Male
  Weight: 83.3 kg

DRUGS (3)
  1. METHOTREXATE [Suspect]
     Active Substance: METHOTREXATE
     Dates: end: 20220731
  2. ONCASPAR [Suspect]
     Active Substance: PEGASPARGASE
     Dates: end: 20220712
  3. VINCRISTINE SULFATE [Suspect]
     Active Substance: VINCRISTINE SULFATE
     Dates: end: 20220731

REACTIONS (4)
  - Pyrexia [None]
  - Headache [None]
  - Blood culture positive [None]
  - Corynebacterium test positive [None]

NARRATIVE: CASE EVENT DATE: 20220801
